FAERS Safety Report 8966083 (Version 1)
Quarter: 2012Q4

REPORT INFORMATION
  Report Type: 
  Country: US (occurrence: US)
  Receive Date: 20121217
  Receipt Date: 20121217
  Transmission Date: 20130627
  Serious: No
  Sender: FDA-Public Use
  Company Number: US-TEVA-375817USA

PATIENT
  Sex: Female

DRUGS (2)
  1. TREANDA [Suspect]
     Indication: MULTIPLE MYELOMA
     Route: 042
  2. PREDNISONE [Concomitant]

REACTIONS (1)
  - Blood test abnormal [Not Recovered/Not Resolved]
